FAERS Safety Report 4957243-8 (Version None)
Quarter: 2006Q1

REPORT INFORMATION
  Report Type: 
  Country: None (occurrence: None)
  Receive Date: 20060323
  Receipt Date: 20060307
  Transmission Date: 20060701
  Serious: Yes (Death, Other)
  Sender: FDA-Public Use
  Company Number: US200603001517

PATIENT
  Age: 65 Year
  Sex: Male

DRUGS (1)
  1. HUMULIN N [Suspect]

REACTIONS (4)
  - CARDIAC DISORDER [None]
  - LOSS OF CONSCIOUSNESS [None]
  - MYOCARDIAL INFARCTION [None]
  - WEIGHT INCREASED [None]
